FAERS Safety Report 18382256 (Version 1)
Quarter: 2020Q4

REPORT INFORMATION
  Report Type: Spontaneous
  Country: US (occurrence: US)
  Receive Date: 20201014
  Receipt Date: 20201014
  Transmission Date: 20210114
  Serious: No
  Sender: FDA-Public Use
  Company Number: US-ALLERGAN-2024619US

PATIENT
  Age: 31 Year
  Sex: Female

DRUGS (3)
  1. UBRELVY [Suspect]
     Active Substance: UBROGEPANT
     Indication: MIGRAINE
     Dosage: 50 MG, SINGLE
     Route: 048
     Dates: start: 20200625
  2. MIDOL [Concomitant]
     Active Substance: IBUPROFEN
     Indication: MENSTRUAL CYCLE MANAGEMENT
     Dosage: 650 MG
     Route: 048
  3. CLINDAMYCIN. [Concomitant]
     Active Substance: CLINDAMYCIN
     Indication: TONSILLOLITH
     Dosage: 300 MG, TID
     Route: 048

REACTIONS (2)
  - Hypopnoea [Recovered/Resolved]
  - Feeling abnormal [Recovered/Resolved]

NARRATIVE: CASE EVENT DATE: 20200625
